FAERS Safety Report 4509397-5 (Version None)
Quarter: 2004Q4

REPORT INFORMATION
  Report Type: 
  Country: None (occurrence: None)
  Receive Date: 20041025
  Receipt Date: 20040624
  Transmission Date: 20050328
  Serious: Yes (Other)
  Sender: FDA-Public Use
  Company Number: US-JNJFOC-20040606896

PATIENT
  Age: 69 Year
  Sex: Female
  Weight: 59.8748 kg

DRUGS (1)
  1. REMICADE [Suspect]
     Indication: RHEUMATOID ARTHRITIS
     Dosage: 180 MG, INTRAVENOUS
     Route: 042
     Dates: start: 20040624

REACTIONS (3)
  - BACK PAIN [None]
  - LOSS OF CONSCIOUSNESS [None]
  - MALAISE [None]
